FAERS Safety Report 5082367-7 (Version None)
Quarter: 2006Q3

REPORT INFORMATION
  Report Type: 
  Country: None (occurrence: None)
  Receive Date: 20060814
  Receipt Date: 20060727
  Transmission Date: 20061208
  Serious: Yes (Death)
  Sender: FDA-Public Use
  Company Number: 2006CT000628

PATIENT
  Age: 77 Year
  Sex: Female
  Weight: 72.5755 kg

DRUGS (14)
  1. VENTAVIS [Suspect]
     Indication: PULMONARY HYPERTENSION
     Dosage: SEE IMAGE
     Route: 055
     Dates: start: 20060609, end: 20060609
  2. VENTAVIS [Suspect]
     Indication: PULMONARY HYPERTENSION
     Dosage: SEE IMAGE
     Route: 055
     Dates: start: 20060609, end: 20060628
  3. SILDENAFIL CITRATE [Concomitant]
  4. KLOR-CON [Concomitant]
  5. OXYCODONE HCL [Concomitant]
  6. CENTRUM [Concomitant]
  7. ASPIRIN [Concomitant]
  8. PRILOSEC [Concomitant]
  9. LORAZEPAM [Concomitant]
  10. IBUPROFEN [Concomitant]
  11. CALCIUM GLUCONATE [Concomitant]
  12. OXYGEN [Concomitant]
  13. LASIX [Concomitant]
  14. ATENOLOL [Concomitant]

REACTIONS (5)
  - ALPHA HAEMOLYTIC STREPTOCOCCAL INFECTION [None]
  - CONDITION AGGRAVATED [None]
  - CULTURE URINE POSITIVE [None]
  - HAEMATURIA [None]
  - PULMONARY HYPERTENSION [None]
